FAERS Safety Report 10846616 (Version 1)
Quarter: 2015Q1

REPORT INFORMATION
  Report Type: Spontaneous
  Country: JP (occurrence: JP)
  Receive Date: 20150220
  Receipt Date: 20150220
  Transmission Date: 20150721
  Serious: Yes (Other)
  Sender: FDA-Public Use
  Company Number: JP-GLAXOSMITHKLINE-JP2015JPN020389

PATIENT
  Age: 16 Year
  Sex: Female

DRUGS (2)
  1. VOTRIENT [Suspect]
     Active Substance: PAZOPANIB HYDROCHLORIDE
     Dosage: 600 MG, 1D
     Route: 048
     Dates: start: 20150218
  2. VOTRIENT [Suspect]
     Active Substance: PAZOPANIB HYDROCHLORIDE
     Indication: EWING^S SARCOMA
     Dosage: 800 MG, 1D
     Route: 048
     Dates: start: 20150210, end: 20150213

REACTIONS (5)
  - Tumour lysis syndrome [Unknown]
  - Pyrexia [Recovered/Resolved]
  - Nausea [Unknown]
  - Blood lactate dehydrogenase increased [Recovered/Resolved]
  - C-reactive protein increased [Recovered/Resolved]

NARRATIVE: CASE EVENT DATE: 201502
